FAERS Safety Report 22021222 (Version 2)
Quarter: 2023Q2

REPORT INFORMATION
  Report Type: Spontaneous
  Country: JP (occurrence: JP)
  Receive Date: 20230222
  Receipt Date: 20230605
  Transmission Date: 20230722
  Serious: Yes (Hospitalization, Other)
  Sender: FDA-Public Use
  Company Number: JP-OTSUKA-2023_004597

PATIENT
  Age: 65 Year
  Sex: Female
  Weight: 55.8 kg

DRUGS (9)
  1. BUSULFEX [Suspect]
     Active Substance: BUSULFAN
     Indication: B-cell lymphoma
     Dosage: 3.2MG/KG
     Route: 041
     Dates: start: 20210123, end: 20210125
  2. BUSULFEX [Suspect]
     Active Substance: BUSULFAN
     Indication: Autologous haematopoietic stem cell transplant
  3. BUSULFEX [Suspect]
     Active Substance: BUSULFAN
     Indication: Premedication
  4. THIOTEPA [Suspect]
     Active Substance: THIOTEPA
     Indication: B-cell lymphoma
     Dosage: 250MG/M2
     Route: 041
     Dates: start: 20210120, end: 20210122
  5. THIOTEPA [Suspect]
     Active Substance: THIOTEPA
     Indication: Autologous haematopoietic stem cell transplant
  6. THIOTEPA [Suspect]
     Active Substance: THIOTEPA
     Indication: Premedication
  7. CYCLOPHOSPHAMIDE [Suspect]
     Active Substance: CYCLOPHOSPHAMIDE
     Indication: B-cell lymphoma
     Dosage: 60MG/KG
     Route: 041
     Dates: start: 20210125, end: 20210126
  8. CYCLOPHOSPHAMIDE [Suspect]
     Active Substance: CYCLOPHOSPHAMIDE
     Indication: Autologous haematopoietic stem cell transplant
  9. CYCLOPHOSPHAMIDE [Suspect]
     Active Substance: CYCLOPHOSPHAMIDE
     Indication: Premedication

REACTIONS (7)
  - Cardiac failure [Recovered/Resolved]
  - Ventricular hypokinesia [Recovered/Resolved]
  - Cardiac hypertrophy [Recovered/Resolved]
  - Pericardial effusion [Recovered/Resolved]
  - Atrial fibrillation [Recovered/Resolved]
  - Cardiomegaly [Recovered/Resolved]
  - Treatment noncompliance [Unknown]
